FAERS Safety Report 8473579-0 (Version None)
Quarter: 2012Q2

REPORT INFORMATION
  Report Type: 
  Country: None (occurrence: None)
  Receive Date: 20120628
  Receipt Date: 20110801
  Transmission Date: 20120825
  Serious: Yes (Death)
  Sender: FDA-Public Use
  Company Number: US-MYLANLABS-2011S1012203

PATIENT
  Age: 71 Year
  Sex: Male

DRUGS (14)
  1. COMTAN [Concomitant]
  2. MODAFINIL [Concomitant]
  3. LEXAPRO [Concomitant]
  4. IPRATROPIUM BROMIDE [Concomitant]
  5. CLOZAPINE [Suspect]
     Route: 048
     Dates: end: 20110504
  6. AVODART [Concomitant]
  7. CARBIDOPA AND LEVODOPA [Concomitant]
     Dosage: 175MG/700MG TOTAL DOSAGE/DAY
  8. NAMENDA [Concomitant]
  9. VESICARE [Concomitant]
  10. EXELON [Concomitant]
     Route: 062
  11. ALBUTEROL [Concomitant]
  12. PREVACID [Concomitant]
  13. ZYRTEC [Concomitant]
  14. CLOZAPINE [Suspect]
     Route: 048
     Dates: end: 20110504

REACTIONS (1)
  - DEATH [None]
